FAERS Safety Report 24423146 (Version 1)
Quarter: 2024Q4

REPORT INFORMATION
  Report Type: Spontaneous
  Country: US (occurrence: None)
  Receive Date: 20241010
  Receipt Date: 20241010
  Transmission Date: 20250114
  Serious: No
  Sender: Public
  Company Number: None

PATIENT
  Age: 74 Year
  Sex: Male
  Weight: 65.32 kg

DRUGS (1)
  1. ODOMZO [Suspect]
     Active Substance: SONIDEGIB
     Indication: Skin cancer
     Dosage: FREQUENCY : AS DIRECTED;?
     Route: 058
     Dates: start: 202404

REACTIONS (2)
  - Fall [None]
  - Pelvic fracture [None]
